FAERS Safety Report 8207881-4 (Version None)
Quarter: 2012Q1

REPORT INFORMATION
  Report Type: 
  Country: None (occurrence: None)
  Receive Date: 20120314
  Receipt Date: 20120302
  Transmission Date: 20120608
  Serious: Yes (Hospitalization)
  Sender: FDA-Public Use
  Company Number: FR-PFIZER INC-2012064871

PATIENT
  Age: 58 Year
  Sex: Female

DRUGS (11)
  1. KETOPROFEN [Suspect]
     Dosage: 100 MG, 2X/DAY
     Route: 042
     Dates: start: 20111229, end: 20111229
  2. POLARAMINE [Concomitant]
     Dosage: 6 MG, UNK
     Dates: start: 20111228
  3. RINGER LACTATE ^AGUETTANT^ [Suspect]
     Dosage: UNK
     Route: 042
     Dates: start: 20111229
  4. FIV-ASA [Concomitant]
     Dosage: UNK
  5. ACETAMINOPHEN [Suspect]
     Indication: PAIN
     Dosage: 1 G, 2X/DAY (1G AT 8 AM AND 1G AT 6 PM)
     Route: 048
     Dates: start: 20111229, end: 20111229
  6. ACUPAN [Concomitant]
     Dosage: 20 MG, UNK
     Dates: start: 20111229
  7. MORPHINE SULFATE [Suspect]
     Indication: PAIN
     Dosage: 10 MG, 2X/DAY
     Route: 048
     Dates: start: 20111228, end: 20111230
  8. ACUPAN [Concomitant]
     Dosage: 20 MG, UNK
     Dates: start: 20111228
  9. TRAMADOL HCL [Suspect]
     Indication: PAIN
     Dosage: 100 MG, UNK
     Dates: start: 20111228
  10. MIDAZOLAM HCL [Suspect]
     Indication: SEDATION
     Dosage: UNK
     Route: 042
     Dates: start: 20111229
  11. RABEPRAZOLE SODIUM [Concomitant]
     Dosage: 20 MG, UNK
     Dates: start: 20111229

REACTIONS (4)
  - RASH ERYTHEMATOUS [None]
  - HYPOTENSION [None]
  - ANAPHYLACTIC SHOCK [None]
  - URTICARIA [None]
